FAERS Safety Report 13079542 (Version 1)
Quarter: 2017Q1

REPORT INFORMATION
  Report Type: Spontaneous
  Country: CN (occurrence: CN)
  Receive Date: 20170103
  Receipt Date: 20170103
  Transmission Date: 20170428
  Serious: Yes (Hospitalization)
  Sender: FDA-Public Use
  Company Number: CN-ACCORD-046988

PATIENT
  Age: 52 Year
  Sex: Male

DRUGS (3)
  1. TACROLIMUS. [Suspect]
     Active Substance: TACROLIMUS
     Indication: RENAL TRANSPLANT
  2. MYCOPHENOLIC ACID. [Concomitant]
     Active Substance: MYCOPHENOLIC ACID
     Indication: RENAL TRANSPLANT
     Dosage: IMMUNOSUPPRESSION REGIMEN
  3. PREDNISONE/PREDNISONE ACETATE [Concomitant]
     Indication: RENAL TRANSPLANT

REACTIONS (1)
  - Renal tubular acidosis [Recovered/Resolved]
